FAERS Safety Report 10204561 (Version 1)
Quarter: 2014Q2

REPORT INFORMATION
  Report Type: Spontaneous
  Country: CO (occurrence: CO)
  Receive Date: 20140529
  Receipt Date: 20140529
  Transmission Date: 20141212
  Serious: Yes (Hospitalization)
  Sender: FDA-Public Use
  Company Number: CO-INCYTE CORPORATION-2014IN001424

PATIENT
  Age: 42 Year
  Sex: Female

DRUGS (1)
  1. JAKAVI [Suspect]
     Dosage: 15 MG, UNK
     Route: 048

REACTIONS (1)
  - Chest pain [Not Recovered/Not Resolved]
